FAERS Safety Report 15830922 (Version 3)
Quarter: 2019Q1

REPORT INFORMATION
  Report Type: Report from Study
  Country: None (occurrence: NL)
  Receive Date: 20190116
  Receipt Date: 20190130
  Transmission Date: 20190417
  Serious: Yes (Other)
  Sender: FDA-Public Use
  Company Number: NL-ABBVIE-19S-114-2620253-00

PATIENT
  Sex: Male

DRUGS (1)
  1. DUODOPA [Suspect]
     Active Substance: CARBIDOPA\LEVODOPA
     Indication: PARKINSON^S DISEASE
     Route: 050
     Dates: start: 20150914

REACTIONS (11)
  - Stoma site discharge [Not Recovered/Not Resolved]
  - Device dislocation [Unknown]
  - Transient ischaemic attack [Unknown]
  - Tremor [Not Recovered/Not Resolved]
  - Wrong technique in device usage process [Not Recovered/Not Resolved]
  - Freezing phenomenon [Not Recovered/Not Resolved]
  - Cognitive disorder [Not Recovered/Not Resolved]
  - Off label use [Recovered/Resolved]
  - Dysphagia [Not Recovered/Not Resolved]
  - Confusional state [Not Recovered/Not Resolved]
  - Stoma site erythema [Not Recovered/Not Resolved]
